FAERS Safety Report 19583078 (Version 1)
Quarter: 2021Q3

REPORT INFORMATION
  Report Type: Spontaneous
  Country: US (occurrence: US)
  Receive Date: 20210720
  Receipt Date: 20210720
  Transmission Date: 20211014
  Serious: No
  Sender: FDA-Public Use
  Company Number: None

PATIENT
  Age: 46 Year
  Sex: Male

DRUGS (1)
  1. INSULIN (INSULIN , ASPART, HUMAN 100 UNT/ML INJ) [Suspect]
     Active Substance: INSULIN ASPART
     Indication: DIABETES MELLITUS
     Dosage: ?          OTHER STRENGTH:100 UNIT/ML;?
     Route: 058
     Dates: start: 20200415, end: 20200423

REACTIONS (2)
  - Angina pectoris [None]
  - Palpitations [None]

NARRATIVE: CASE EVENT DATE: 20200513
